FAERS Safety Report 8573349-9 (Version None)
Quarter: 2012Q2

REPORT INFORMATION
  Report Type: 
  Country: None (occurrence: None)
  Receive Date: 20120423
  Receipt Date: 20090709
  Transmission Date: 20120825
  Serious: Yes (Death, Hospitalization)
  Sender: FDA-Public Use
  Company Number: PHEH2009US07348

PATIENT
  Age: 47 Year
  Sex: Male
  Weight: 54.9 kg

DRUGS (20)
  1. NEXIUM [Concomitant]
  2. METHADONE HYDROCHLORIDE [Concomitant]
  3. MIRALAX [Concomitant]
  4. MULTI-VIT (VITAMINS NOS) [Concomitant]
  5. DIALYSIS (NO INGREDIENTS/SUBSTANCES) [Concomitant]
  6. KAYEXALATE [Concomitant]
  7. VANCOMYCIN [Concomitant]
  8. AMIODARONE HCL [Concomitant]
  9. EXJADE [Suspect]
     Indication: HAEMOCHROMATOSIS
     Dosage: 1500 MG, QD, ORAL
     Route: 048
     Dates: start: 20061103, end: 20090101
  10. EXJADE [Suspect]
     Indication: SICKLE CELL ANAEMIA
     Dosage: 1500 MG, QD, ORAL
     Route: 048
     Dates: start: 20061103, end: 20090101
  11. EXJADE [Suspect]
     Indication: BLOOD PRODUCT TRANSFUSION DEPENDENT
     Dosage: 1500 MG, QD, ORAL
     Route: 048
     Dates: start: 20061103, end: 20090101
  12. DILAUDID [Concomitant]
  13. NIFEDIPINE [Concomitant]
  14. FENTANYL [Concomitant]
  15. ATROVENT [Concomitant]
  16. ALBUTEROL [Concomitant]
  17. HYDROCODONE BITARTRATE [Concomitant]
  18. FLUID/ELECTROLYTE REPLACEMENT THERAPY (FLUID/ELECTROLYTE REPLACEMENT T [Concomitant]
  19. LASIX [Concomitant]
  20. FOLIC ACID [Concomitant]

REACTIONS (36)
  - TRICUSPID VALVE INCOMPETENCE [None]
  - ATRIAL FIBRILLATION [None]
  - ORTHOPNOEA [None]
  - BLOOD CREATININE INCREASED [None]
  - BLOOD LACTATE DEHYDROGENASE INCREASED [None]
  - OLIGURIA [None]
  - BLOOD BILIRUBIN INCREASED [None]
  - HYPOGLYCAEMIA [None]
  - PULMONARY HYPERTENSION [None]
  - RENAL FAILURE [None]
  - DYSPNOEA [None]
  - HYPERKALAEMIA [None]
  - PURULENT DISCHARGE [None]
  - WHITE BLOOD CELL COUNT INCREASED [None]
  - SICKLE CELL ANAEMIA WITH CRISIS [None]
  - MULTI-ORGAN FAILURE [None]
  - SLEEP DISORDER [None]
  - VENOOCCLUSIVE LIVER DISEASE [None]
  - DRUG INTOLERANCE [None]
  - MITRAL VALVE INCOMPETENCE [None]
  - TACHYPNOEA [None]
  - NEPHROPATHY [None]
  - HEPATIC CIRRHOSIS [None]
  - CACHEXIA [None]
  - LEFT VENTRICULAR FAILURE [None]
  - BLOOD UREA INCREASED [None]
  - GENERALISED OEDEMA [None]
  - SCROTAL OEDEMA [None]
  - HAEMOSIDEROSIS [None]
  - BLOOD ALKALINE PHOSPHATASE INCREASED [None]
  - RESPIRATORY ACIDOSIS [None]
  - URINE OUTPUT DECREASED [None]
  - DYSURIA [None]
  - OEDEMA [None]
  - OCULAR ICTERUS [None]
  - PAIN [None]
